FAERS Safety Report 7873532-1 (Version None)
Quarter: 2011Q4

REPORT INFORMATION
  Report Type: 
  Country: None (occurrence: None)
  Receive Date: 20111030
  Receipt Date: 20110505
  Transmission Date: 20120403
  Serious: No
  Sender: FDA-Public Use
  Company Number: US-AMGEN-USASP2011023627

PATIENT
  Age: 64 Year
  Sex: Female
  Weight: 92.971 kg

DRUGS (9)
  1. ENBREL [Suspect]
     Indication: PRODUCT USED FOR UNKNOWN INDICATION
     Dosage: 50 MG, QWK
     Route: 058
  2. PLENDIL [Concomitant]
     Dosage: 5 MG, UNK
  3. HYDROCHLOROTH [Concomitant]
     Dosage: 25 MG, UNK
  4. FOLIC ACID [Concomitant]
     Dosage: 1 MG, UNK
  5. ACCUPRIL [Concomitant]
     Dosage: 20 MG, UNK
  6. PRILOSEC [Concomitant]
     Dosage: 20 MG, UNK
  7. PLAQUENIL [Concomitant]
     Dosage: 200 MG, UNK
  8. METHOTREXATE [Concomitant]
     Dosage: 2.5 MG, UNK
  9. NASONEX [Concomitant]
     Dosage: 50 A?G, UNK

REACTIONS (1)
  - BRONCHITIS [None]
